FAERS Safety Report 13333561 (Version 1)
Quarter: 2017Q1

REPORT INFORMATION
  Report Type: Spontaneous
  Country: US (occurrence: US)
  Receive Date: 20170314
  Receipt Date: 20170314
  Transmission Date: 20170428
  Serious: Yes (Other)
  Sender: FDA-Public Use
  Company Number: US-FRESENIUS KABI-FK201702038

PATIENT
  Sex: Female

DRUGS (2)
  1. PENTAM 300 [Suspect]
     Active Substance: PENTAMIDINE ISETHIONATE
     Indication: ANTIFUNGAL PROPHYLAXIS
     Route: 055
     Dates: start: 2016
  2. WATER FOR INJECTION [Suspect]
     Active Substance: WATER
     Indication: MEDICATION DILUTION
     Route: 055
     Dates: start: 2016

REACTIONS (4)
  - Throat irritation [Recovered/Resolved]
  - Dysphonia [Recovering/Resolving]
  - Off label use [Not Recovered/Not Resolved]
  - Product use issue [Not Recovered/Not Resolved]

NARRATIVE: CASE EVENT DATE: 2016
